FAERS Safety Report 11164531 (Version 1)
Quarter: 2015Q2

REPORT INFORMATION
  Report Type: Spontaneous
  Country: US (occurrence: None)
  Receive Date: 20150603
  Receipt Date: 20150603
  Transmission Date: 20150821
  Serious: No
  Sender: FDA-Public Use
  Company Number: None

PATIENT
  Age: 67 Year
  Sex: Male
  Weight: 67.3 kg

DRUGS (1)
  1. BLEOMYCIN [Suspect]
     Active Substance: BLEOMYCIN SULFATE
     Indication: HODGKIN^S DISEASE
     Dosage: 18 UNITS OTHER IV
     Route: 042
     Dates: start: 20150311, end: 20150520

REACTIONS (4)
  - Respiratory depression [None]
  - Cough [None]
  - Wheezing [None]
  - Interstitial lung disease [None]

NARRATIVE: CASE EVENT DATE: 20150528
